FAERS Safety Report 8664059 (Version 2)
Quarter: 2013Q3

REPORT INFORMATION
  Report Type: Spontaneous
  Country: US (occurrence: US)
  Receive Date: 20120713
  Receipt Date: 20130717
  Transmission Date: 20140515
  Serious: Yes (Hospitalization)
  Sender: FDA-Public Use
  Company Number: US-GLAXOSMITHKLINE-A0869345A

PATIENT
  Age: 47 Year
  Sex: Female

DRUGS (2)
  1. AVANDIA [Suspect]
     Indication: TYPE 2 DIABETES MELLITUS
     Dosage: 4MG TWICE PER DAY
     Route: 065
     Dates: start: 20061010, end: 20090201
  2. AVANDARYL [Suspect]
     Indication: TYPE 2 DIABETES MELLITUS
     Route: 048

REACTIONS (6)
  - Macular oedema [Not Recovered/Not Resolved]
  - Fracture [Unknown]
  - Anaemia [Unknown]
  - Heart rate irregular [Unknown]
  - Diabetes mellitus [Unknown]
  - Emotional disorder [Unknown]
